FAERS Safety Report 14836972 (Version 3)
Quarter: 2018Q3

REPORT INFORMATION
  Report Type: Spontaneous
  Country: US (occurrence: US)
  Receive Date: 20180502
  Receipt Date: 20180918
  Transmission Date: 20181010
  Serious: Yes (Hospitalization, Other)
  Sender: FDA-Public Use
  Company Number: US-TEVA-2018-US-886326

PATIENT
  Age: 46 Year
  Sex: Female

DRUGS (11)
  1. NUVIGIL [Suspect]
     Active Substance: ARMODAFINIL
     Indication: SOMNOLENCE
  2. BOTOX [Concomitant]
     Active Substance: ONABOTULINUMTOXINA
  3. BREO ELLIPTA [Concomitant]
     Active Substance: FLUTICASONE FUROATE\VILANTEROL TRIFENATATE
  4. PEPCID [Concomitant]
     Active Substance: FAMOTIDINE
  5. SUMATRIPTAN. [Concomitant]
     Active Substance: SUMATRIPTAN
  6. FEXOFENADINE [Suspect]
     Active Substance: FEXOFENADINE\FEXOFENADINE HYDROCHLORIDE
     Route: 065
  7. PREDNISONE. [Concomitant]
     Active Substance: PREDNISONE
  8. RITALIN [Concomitant]
     Active Substance: METHYLPHENIDATE HYDROCHLORIDE
  9. NUVIGIL [Suspect]
     Active Substance: ARMODAFINIL
     Indication: FEELING ABNORMAL
     Dosage: 150 MILLIGRAM DAILY;
     Dates: start: 20151022, end: 20180426
  10. BENADRYL [Concomitant]
     Active Substance: DIPHENHYDRAMINE HYDROCHLORIDE
  11. EPIPEN [Concomitant]
     Active Substance: EPINEPHRINE

REACTIONS (17)
  - Arrhythmia [Unknown]
  - Heart rate decreased [Unknown]
  - Palpitations [Recovering/Resolving]
  - Burning sensation [Unknown]
  - Anaphylactic reaction [Recovered/Resolved]
  - Dizziness [Unknown]
  - Nausea [Recovering/Resolving]
  - Rash [Recovering/Resolving]
  - Urticaria [Recovering/Resolving]
  - Fatigue [Unknown]
  - Flushing [Unknown]
  - Hypersensitivity [Recovering/Resolving]
  - Rash [Recovered/Resolved]
  - Malaise [Unknown]
  - Allergic reaction to excipient [Recovered/Resolved]
  - Vision blurred [Unknown]
  - Feeling abnormal [Unknown]

NARRATIVE: CASE EVENT DATE: 201607
